FAERS Safety Report 23315868 (Version 2)
Quarter: 2024Q1

REPORT INFORMATION
  Report Type: Report from Study
  Country: CN (occurrence: CN)
  Receive Date: 20231219
  Receipt Date: 20240117
  Transmission Date: 20240410
  Serious: No
  Sender: FDA-Public Use
  Company Number: CN-PFIZER INC-PV202300202930

PATIENT
  Age: 66 Year
  Sex: Female
  Weight: 60 kg

DRUGS (16)
  1. NIRMATRELVIR\RITONAVIR [Suspect]
     Active Substance: NIRMATRELVIR\RITONAVIR
     Indication: COVID-19
     Dosage: [NIRMATRELVIR 300MG]/[RITONAVIR 100MG], 2X/DAY (BID), ROUTE: PC
     Route: 048
     Dates: start: 20220502, end: 20220507
  2. NIRMATRELVIR\RITONAVIR [Suspect]
     Active Substance: NIRMATRELVIR\RITONAVIR
     Dosage: [NIRMATRELVIR 300MG]/[RITONAVIR 100MG], 2X/DAY (BID), ROUTE: PC
     Route: 048
     Dates: start: 20220515, end: 20220520
  3. VALSARTAN [Concomitant]
     Active Substance: VALSARTAN
     Indication: Hypertension
     Dosage: UNK
     Route: 048
     Dates: start: 20220430, end: 20220520
  4. NIFEDIPINE [Concomitant]
     Active Substance: NIFEDIPINE
     Indication: Hypertension
     Dosage: CONTROLLED-RELEASE TABLETS
     Route: 048
     Dates: start: 20220430, end: 20220520
  5. ASPIRIN [Concomitant]
     Active Substance: ASPIRIN
     Indication: Anticoagulant therapy
     Dosage: ENTERIC-COATED TABLETS
     Route: 048
     Dates: start: 20220430, end: 20220520
  6. MONTELUKAST SODIUM [Concomitant]
     Active Substance: MONTELUKAST SODIUM
     Indication: Leukotriene increased
     Dosage: UNK
     Route: 048
     Dates: start: 20220503, end: 20220520
  7. HEPARIN SODIUM [Concomitant]
     Active Substance: HEPARIN SODIUM
     Indication: Anticoagulant therapy
     Dosage: UNK
     Route: 058
     Dates: start: 20220515, end: 20220516
  8. ENOXAPARIN SODIUM [Concomitant]
     Active Substance: ENOXAPARIN SODIUM
     Indication: Anticoagulant therapy
     Dosage: UNK
     Route: 058
     Dates: start: 20220516, end: 20220520
  9. THYMALFASIN [Concomitant]
     Active Substance: THYMALFASIN
     Indication: Immune disorder prophylaxis
     Dosage: UNK
     Route: 058
     Dates: start: 20220515, end: 20220520
  10. HERBALS\MENTHOL [Concomitant]
     Active Substance: HERBALS\MENTHOL
     Indication: Anti-infective therapy
     Dosage: PARTICLE
     Route: 048
     Dates: start: 20220501, end: 20220501
  11. HERBALS\MENTHOL [Concomitant]
     Active Substance: HERBALS\MENTHOL
     Dosage: PARTICLE
     Route: 048
     Dates: start: 20220504, end: 20220504
  12. HERBALS\MENTHOL [Concomitant]
     Active Substance: HERBALS\MENTHOL
     Dosage: PARTICLE
     Route: 048
     Dates: start: 20220511, end: 20220511
  13. HERBALS\MENTHOL [Concomitant]
     Active Substance: HERBALS\MENTHOL
     Dosage: PARTICLE
     Route: 048
     Dates: start: 20220513, end: 20220514
  14. QU TAN LING [Concomitant]
     Indication: Productive cough
     Dosage: UNK
     Route: 048
     Dates: start: 20220504, end: 20220504
  15. FU ZHI QING RUAN GAO [Concomitant]
     Indication: Haemorrhoids
     Dosage: UNK
     Route: 003
     Dates: start: 20220505, end: 20220505
  16. GLYCERIN [Concomitant]
     Active Substance: GLYCERIN
     Indication: Gastrointestinal disorder
     Dosage: UNK
     Route: 054
     Dates: start: 20220520, end: 20220520

REACTIONS (1)
  - Overdose [Unknown]

NARRATIVE: CASE EVENT DATE: 20220501
